FAERS Safety Report 4325024-4 (Version None)
Quarter: 2004Q1

REPORT INFORMATION
  Report Type: 
  Country: None (occurrence: None)
  Receive Date: 20040326
  Receipt Date: 20040312
  Transmission Date: 20041129
  Serious: Yes (Hospitalization)
  Sender: FDA-Public Use
  Company Number: FR-ROCHE-361545

PATIENT
  Age: 17 Year
  Sex: Male
  Weight: 80 kg

DRUGS (2)
  1. ROACCUTANE [Suspect]
     Indication: ACNE
     Route: 048
     Dates: start: 19931113, end: 19940530
  2. MYNOCINE [Suspect]
     Indication: ACNE
     Route: 048
     Dates: end: 19951113

REACTIONS (3)
  - ASTHENIA [None]
  - MUSCLE CRAMP [None]
  - MYALGIA [None]
